FAERS Safety Report 7006584-1 (Version None)
Quarter: 2010Q3

REPORT INFORMATION
  Report Type: 
  Country: None (occurrence: None)
  Receive Date: 20100921
  Receipt Date: 20100921
  Transmission Date: 20110219
  Serious: Yes (Other)
  Sender: FDA-Public Use
  Company Number: None

PATIENT
  Age: 19 Year
  Sex: Female
  Weight: 81.6475 kg

DRUGS (1)
  1. TRI-SPRINTEC [Suspect]
     Indication: CONTRACEPTION
     Dosage: 1 PILL PER DAY PO
     Route: 048
     Dates: start: 20090801

REACTIONS (12)
  - ABDOMINAL PAIN UPPER [None]
  - BREAST TENDERNESS [None]
  - CHEST PAIN [None]
  - DEPRESSION [None]
  - DIZZINESS [None]
  - DYSPNOEA [None]
  - FATIGUE [None]
  - HEADACHE [None]
  - MENSTRUATION IRREGULAR [None]
  - NAUSEA [None]
  - VAGINAL HAEMORRHAGE [None]
  - WEIGHT INCREASED [None]
